FAERS Safety Report 22118950 (Version 1)
Quarter: 2023Q1

REPORT INFORMATION
  Report Type: Spontaneous
  Country: GB (occurrence: GB)
  Receive Date: 20230321
  Receipt Date: 20230321
  Transmission Date: 20230418
  Serious: Yes (Disabling, Other)
  Sender: FDA-Public Use
  Company Number: GB-MHRA-MED-202303112156225420-YMRBK

PATIENT
  Age: 19 Year
  Sex: Male

DRUGS (4)
  1. MONTELUKAST [Suspect]
     Active Substance: MONTELUKAST SODIUM
     Indication: Asthma
     Dates: start: 2008
  2. MONTELUKAST [Suspect]
     Active Substance: MONTELUKAST SODIUM
     Indication: Hypersensitivity
  3. MONTELUKAST [Suspect]
     Active Substance: MONTELUKAST SODIUM
     Indication: Eczema
  4. MONTELUKAST [Suspect]
     Active Substance: MONTELUKAST SODIUM
     Indication: Atopy

REACTIONS (5)
  - Nightmare [Recovering/Resolving]
  - Depression [Recovering/Resolving]
  - Aggression [Recovering/Resolving]
  - Hallucination [Recovering/Resolving]
  - Somnambulism [Recovering/Resolving]

NARRATIVE: CASE EVENT DATE: 20180505
